FAERS Safety Report 10151899 (Version 1)
Quarter: 2014Q2

REPORT INFORMATION
  Report Type: Spontaneous
  Country: US (occurrence: US)
  Receive Date: 20140505
  Receipt Date: 20140505
  Transmission Date: 20141212
  Serious: No
  Sender: FDA-Public Use
  Company Number: US-JNJFOC-20140415398

PATIENT
  Sex: Female
  Weight: 74.84 kg

DRUGS (7)
  1. DURAGESIC [Suspect]
     Indication: FIBROMYALGIA
     Route: 062
  2. LOVAZA [Concomitant]
     Indication: BLOOD CHOLESTEROL
     Route: 048
  3. WELLBUTRIN XL [Concomitant]
     Indication: FIBROMYALGIA
     Route: 048
  4. ZOLOFT [Concomitant]
     Indication: FIBROMYALGIA
     Route: 048
  5. CLONAZEPAM [Concomitant]
     Indication: FIBROMYALGIA
     Route: 048
  6. AMLODIPINE [Concomitant]
     Indication: BLOOD PRESSURE
     Route: 048
  7. ATENOLOL [Concomitant]
     Indication: BLOOD PRESSURE
     Route: 048

REACTIONS (6)
  - Wrong technique in drug usage process [Not Recovered/Not Resolved]
  - Product quality issue [Unknown]
  - Product quality issue [Unknown]
  - Drug effect decreased [Not Recovered/Not Resolved]
  - Wrong technique in drug usage process [Not Recovered/Not Resolved]
  - Wrong technique in drug usage process [Unknown]
